FAERS Safety Report 25402149 (Version 4)
Quarter: 2025Q4

REPORT INFORMATION
  Report Type: Spontaneous
  Country: EU (occurrence: EU)
  Receive Date: 20250605
  Receipt Date: 20251110
  Transmission Date: 20260117
  Serious: Yes (Hospitalization)
  Sender: PFIZER
  Company Number: EU-ROCHE-10000286499

PATIENT
  Age: 59 Year
  Sex: Female
  Weight: 85 kg

DRUGS (16)
  1. CARBOPLATIN [Suspect]
     Active Substance: CARBOPLATIN
     Indication: Triple negative breast cancer
     Dosage: 540 MG
     Route: 042
     Dates: start: 20241216
  2. CARBOPLATIN [Suspect]
     Active Substance: CARBOPLATIN
     Dosage: 540 MG (TOTAL DOSE, 2160 MG, RECEIVED MOST RECENT DOSE OF CARBOPLATIN PRIOR TO SAE)
     Route: 042
     Dates: start: 20250303
  3. DOXORUBICIN HYDROCHLORIDE [Suspect]
     Active Substance: DOXORUBICIN HYDROCHLORIDE
     Indication: Triple negative breast cancer
     Dosage: 60 MG/M2
     Route: 042
     Dates: start: 20250311
  4. DOXORUBICIN HYDROCHLORIDE [Suspect]
     Active Substance: DOXORUBICIN HYDROCHLORIDE
     Dosage: 60 MG/M2 (112 MG) (TOTAL DOSE 180 MG/M2, RECEIVED MOST RECENT DOSE PRIOR TO SAE)
     Route: 042
     Dates: start: 20250422
  5. TIRAGOLUMAB [Suspect]
     Active Substance: TIRAGOLUMAB
     Indication: Triple negative breast cancer
     Dosage: 600 MG
     Route: 042
     Dates: start: 20241216
  6. TIRAGOLUMAB [Suspect]
     Active Substance: TIRAGOLUMAB
     Dosage: 600 MG
     Route: 042
     Dates: start: 20250707
  7. TIRAGOLUMAB [Suspect]
     Active Substance: TIRAGOLUMAB
     Dosage: 600 MG
     Route: 042
     Dates: start: 20250422
  8. ATEZOLIZUMAB [Suspect]
     Active Substance: ATEZOLIZUMAB
     Indication: Triple negative breast cancer
     Dosage: 1200 MG
     Route: 042
     Dates: start: 20241216
  9. ATEZOLIZUMAB [Suspect]
     Active Substance: ATEZOLIZUMAB
     Dosage: 1200 MG
     Route: 042
     Dates: start: 20250707
  10. ATEZOLIZUMAB [Suspect]
     Active Substance: ATEZOLIZUMAB
     Dosage: 1200 MG
     Route: 042
     Dates: start: 20250422
  11. PACLITAXEL [Suspect]
     Active Substance: PACLITAXEL
     Indication: Triple negative breast cancer
     Dosage: 100 MG/M2
     Route: 042
     Dates: start: 20241216
  12. PACLITAXEL [Suspect]
     Active Substance: PACLITAXEL
     Dosage: 190 MG, DAILY (TOTAL DOSE 1200 MG/M2, LAST DAILY DOSE ADMINISTERED BEFORE SAE ONSET)
     Route: 042
     Dates: start: 20250303
  13. CYCLOPHOSPHAMIDE [Suspect]
     Active Substance: CYCLOPHOSPHAMIDE
     Indication: Triple negative breast cancer
     Dosage: 600 MG/M2
     Route: 042
     Dates: start: 20250311
  14. CYCLOPHOSPHAMIDE [Suspect]
     Active Substance: CYCLOPHOSPHAMIDE
     Dosage: 600 MG/M2, DAILY (1120 MG) (TOTAL DOSE 1800 MILLIGRAM/SQ.METER)
     Route: 042
     Dates: start: 20250422
  15. ONDANSETRON [Concomitant]
     Active Substance: ONDANSETRON
     Indication: Nausea
     Dosage: UNK
  16. AKYNZEO [FOSNETUPITANT CHLORIDE HYDROCHLORIDE;PALONOSETRON HYDROCHLORI [Concomitant]
     Dosage: UNK

REACTIONS (3)
  - Troponin increased [Recovered/Resolved]
  - Chest pain [Not Recovered/Not Resolved]
  - Off label use [Unknown]

NARRATIVE: CASE EVENT DATE: 20241216
